FAERS Safety Report 11814406 (Version 1)
Quarter: 2015Q4

REPORT INFORMATION
  Report Type: Spontaneous
  Country: US (occurrence: None)
  Receive Date: 20151208
  Receipt Date: 20151208
  Transmission Date: 20160305
  Serious: Yes (Hospitalization, Other)
  Sender: FDA-Public Use
  Company Number: 2015-ALVOGEN-014598

PATIENT
  Age: 83 Year
  Sex: Female
  Weight: 81.1 kg

DRUGS (8)
  1. NASONEX (NASONEX) [Concomitant]
  2. COREG (COREG) [Concomitant]
  3. FLOVENT (FLOVENT) [Concomitant]
  4. DIOVAN (DIOVAN) [Concomitant]
  5. LISINOPRIL (LISINOPRIL) [Concomitant]
     Active Substance: LISINOPRIL
  6. HYDROCHLOROTHIAZIDE (HYDROCHLOROTHIAZIDE) [Concomitant]
     Active Substance: HYDROCHLOROTHIAZIDE
  7. EXEMESTANE. [Suspect]
     Active Substance: EXEMESTANE
     Indication: PRODUCT USED FOR UNKNOWN INDICATION
     Dates: end: 20150702
  8. ASPIRIN (ASPIRIN) [Concomitant]
     Active Substance: ASPIRIN

REACTIONS (6)
  - Oedema peripheral [None]
  - Renal disorder [None]
  - Blood cholesterol increased [None]
  - Blood pressure increased [None]
  - Blood pressure inadequately controlled [None]
  - Headache [None]

NARRATIVE: CASE EVENT DATE: 20150525
